FAERS Safety Report 15916689 (Version 2)
Quarter: 2019Q1

REPORT INFORMATION
  Report Type: Spontaneous
  Country: CN (occurrence: CN)
  Receive Date: 20190205
  Receipt Date: 20190314
  Transmission Date: 20190417
  Serious: Yes (Death, Other)
  Sender: FDA-Public Use
  Company Number: CN-ROCHE-2249227

PATIENT
  Age: 36 Year
  Sex: Female

DRUGS (5)
  1. TACROLIMUS. [Concomitant]
     Active Substance: TACROLIMUS
  2. ANTI-THYMOCYTE GLOBULIN (EQUINE) [Concomitant]
     Active Substance: EQUINE THYMOCYTE IMMUNE GLOBULIN
  3. MYCOPHENOLATE MOFETIL. [Suspect]
     Active Substance: MYCOPHENOLATE MOFETIL
     Indication: POSTOPERATIVE CARE
     Route: 065
  4. GANCICLOVIR. [Concomitant]
     Active Substance: GANCICLOVIR
     Indication: INFECTION PROPHYLAXIS
     Route: 065
  5. CSA [Concomitant]
     Active Substance: CYCLOSPORINE

REACTIONS (5)
  - Infection [Fatal]
  - Abdominal infection [Unknown]
  - Sepsis [Unknown]
  - Vascular graft complication [Unknown]
  - Vascular pseudoaneurysm ruptured [Unknown]
